FAERS Safety Report 15705528 (Version 1)
Quarter: 2018Q4

REPORT INFORMATION
  Report Type: Spontaneous
  Country: US (occurrence: US)
  Receive Date: 20181210
  Receipt Date: 20181210
  Transmission Date: 20190205
  Serious: Yes (Hospitalization, Other)
  Sender: FDA-Public Use
  Company Number: US-JUBILANT CADISTA PHARMACEUTICALS-2018JUB00495

PATIENT
  Age: 63 Year
  Sex: Female
  Weight: 81.3 kg

DRUGS (3)
  1. INCAGN01876 [Suspect]
     Active Substance: INVESTIGATIONAL PRODUCT
     Indication: CERVIX CARCINOMA
     Dosage: 300 MG, 2X/MONTH
     Route: 042
     Dates: start: 20180816, end: 20181010
  2. NIVOLUMAB [Suspect]
     Active Substance: NIVOLUMAB
     Indication: CERVIX CARCINOMA
     Dosage: 240 MG, 2X/MONTH
     Route: 042
     Dates: start: 20180816, end: 20181010
  3. PREDNISONE. [Suspect]
     Active Substance: PREDNISONE
     Indication: MUSCULAR WEAKNESS
     Dosage: TAPER
     Dates: start: 20181010

REACTIONS (2)
  - Large intestine perforation [Not Recovered/Not Resolved]
  - Diverticulitis [Unknown]

NARRATIVE: CASE EVENT DATE: 20181101
